FAERS Safety Report 6170030-0 (Version None)
Quarter: 2009Q2

REPORT INFORMATION
  Report Type: 
  Country: None (occurrence: None)
  Receive Date: 20090428
  Receipt Date: 20090424
  Transmission Date: 20091009
  Serious: Yes (Hospitalization)
  Sender: FDA-Public Use
  Company Number: US-BRISTOL-MYERS SQUIBB COMPANY-14601959

PATIENT
  Age: 49 Year
  Sex: Male
  Weight: 98 kg

DRUGS (3)
  1. CETUXIMAB [Suspect]
     Indication: SQUAMOUS CELL CARCINOMA
     Dosage: FIRST COURSE START DATE : 17-MAR-2009
     Dates: start: 20090414, end: 20090414
  2. CISPLATIN [Suspect]
     Indication: SQUAMOUS CELL CARCINOMA
     Dosage: FIRST COURSE START DATE: 17-MAR-2009
     Dates: start: 20090414, end: 20090414
  3. RADIATION THERAPY [Suspect]
     Indication: SQUAMOUS CELL CARCINOMA
     Dosage: 1 DOSAGE FORM=4400CGY. NO. OF FRACTIONS:19.FIRST COURSE: 17MAR09
     Dates: start: 20090420, end: 20090420

REACTIONS (1)
  - HAEMATEMESIS [None]
